FAERS Safety Report 9961748 (Version 1)
Quarter: 2014Q1

REPORT INFORMATION
  Report Type: Report from Study
  Country: US (occurrence: US)
  Receive Date: 20140305
  Receipt Date: 20140305
  Transmission Date: 20141002
  Serious: No
  Sender: FDA-Public Use
  Company Number: US-ABBVIE-13P-163-1113335-00

PATIENT
  Age: 58 Year
  Sex: Female

DRUGS (10)
  1. HUMIRA [Suspect]
     Indication: CROHN^S DISEASE
     Dates: start: 20130603, end: 20130603
  2. HUMIRA [Suspect]
     Dates: start: 20130617, end: 20130617
  3. HUMIRA [Suspect]
     Dosage: FREQUENCY UNKNOWN
     Route: 058
     Dates: start: 20130701, end: 20130701
  4. HUMIRA [Suspect]
     Dosage: FREQUENCY UNKNOWN
     Route: 058
  5. ACEBUTOLOL [Concomitant]
     Indication: HYPERTENSION
     Route: 048
  6. DIOVAN [Concomitant]
     Indication: HYPERTENSION
     Route: 048
  7. ALDACTONE [Concomitant]
     Indication: ALOPECIA
     Route: 048
  8. GEMFIBROZIL [Concomitant]
     Indication: BLOOD TRIGLYCERIDES INCREASED
     Route: 048
  9. PAXIL [Concomitant]
     Indication: DEPRESSION
     Route: 048
  10. METFORMIN [Concomitant]
     Indication: DIABETES MELLITUS
     Route: 048

REACTIONS (3)
  - Drug administration error [Not Recovered/Not Resolved]
  - Rash pruritic [Recovered/Resolved]
  - Alopecia [Not Recovered/Not Resolved]
